FAERS Safety Report 16802199 (Version 1)
Quarter: 2019Q3

REPORT INFORMATION
  Report Type: Spontaneous
  Country: US (occurrence: US)
  Receive Date: 20190912
  Receipt Date: 20190912
  Transmission Date: 20191005
  Serious: Yes (Hospitalization)
  Sender: FDA-Public Use
  Company Number: US-PFIZER INC-2019197027

PATIENT
  Age: 65 Year
  Sex: Male
  Weight: 81.63 kg

DRUGS (3)
  1. REVATIO [Suspect]
     Active Substance: SILDENAFIL CITRATE
     Indication: SECONDARY HYPERTENSION
  2. REVATIO [Suspect]
     Active Substance: SILDENAFIL CITRATE
     Indication: PORTAL HYPERTENSION
  3. REVATIO [Suspect]
     Active Substance: SILDENAFIL CITRATE
     Indication: HEPATIC CIRRHOSIS
     Dosage: 40 MG, 3X/DAY (TOTAL 6 PER DAY.120 MG DAILY TOTAL)
     Route: 048

REACTIONS (4)
  - Product use issue [Unknown]
  - Off label use [Unknown]
  - Weight increased [Recovered/Resolved with Sequelae]
  - Fluid retention [Recovered/Resolved with Sequelae]

NARRATIVE: CASE EVENT DATE: 20190706
